FAERS Safety Report 4449901-9 (Version None)
Quarter: 2004Q3

REPORT INFORMATION
  Report Type: 
  Country: None (occurrence: None)
  Receive Date: 20040915
  Receipt Date: 20040910
  Transmission Date: 20050211
  Serious: Yes (Death, Hospitalization)
  Sender: FDA-Public Use
  Company Number: 200412729EU

PATIENT
  Age: 89 Year
  Sex: Female

DRUGS (7)
  1. LANTUS [Suspect]
     Indication: DIABETES MELLITUS
     Route: 058
     Dates: start: 20040109, end: 20040312
  2. OXYNORM [Concomitant]
  3. AMITRIPTYLINE HCL [Concomitant]
  4. LEVAXIN [Concomitant]
  5. LAKTULOS [Concomitant]
  6. IMOVANE [Concomitant]
  7. NEURONTIN [Concomitant]

REACTIONS (5)
  - BLISTER [None]
  - INFECTION [None]
  - PEMPHIGOID [None]
  - PRURITUS [None]
  - WOUND [None]
